FAERS Safety Report 21074423 (Version 2)
Quarter: 2022Q3

REPORT INFORMATION
  Report Type: Spontaneous
  Country: US (occurrence: US)
  Receive Date: 20220713
  Receipt Date: 20220721
  Transmission Date: 20221026
  Serious: Yes (Life-Threatening, Hospitalization, Other)
  Sender: FDA-Public Use
  Company Number: US-VELOXIS PHARMACEUTICALS-2022VELUS-000448

PATIENT
  Age: 11 Year
  Sex: Female

DRUGS (8)
  1. TACROLIMUS [Suspect]
     Active Substance: TACROLIMUS
     Indication: Prophylaxis against transplant rejection
     Dosage: TROUGH GOAL WERE REDUCED
  2. TACROLIMUS [Suspect]
     Active Substance: TACROLIMUS
     Indication: Immunosuppressant drug therapy
     Dosage: FURTHER DECREASED
  3. TACROLIMUS [Suspect]
     Active Substance: TACROLIMUS
     Dosage: TROUGH GOAL WAS INCREASED TO ITS PREVIOUS LEVEL
  4. MYCOPHENOLIC ACID [Suspect]
     Active Substance: MYCOPHENOLIC ACID
     Indication: Prophylaxis against transplant rejection
     Dosage: UNK
  5. MYCOPHENOLIC ACID [Suspect]
     Active Substance: MYCOPHENOLIC ACID
     Indication: Immunosuppressant drug therapy
     Dosage: RESTARTED AT 50 PERCENT OF THE PREVIOUS DOSE (REDUCED)
  6. PREDNISONE [Suspect]
     Active Substance: PREDNISONE
     Indication: Prophylaxis against transplant rejection
     Dosage: UNK
  7. PREDNISONE [Suspect]
     Active Substance: PREDNISONE
     Indication: Immunosuppressant drug therapy
  8. RITUXIMAB [Suspect]
     Active Substance: RITUXIMAB
     Indication: Prophylaxis against transplant rejection
     Dosage: UNK

REACTIONS (7)
  - Transplant rejection [Recovered/Resolved]
  - Hypoxia [Unknown]
  - Multisystem inflammatory syndrome in children [Unknown]
  - COVID-19 pneumonia [Recovering/Resolving]
  - Acute respiratory distress syndrome [Recovering/Resolving]
  - Bronchopulmonary aspergillosis [Recovering/Resolving]
  - Product use issue [Unknown]
